FAERS Safety Report 8984458 (Version 1)
Quarter: 2012Q4

REPORT INFORMATION
  Report Type: 
  Country: US (occurrence: US)
  Receive Date: 20121226
  Receipt Date: 20121226
  Transmission Date: 20130627
  Serious: Yes (Life-Threatening, Hospitalization)
  Sender: FDA-Public Use
  Company Number: US-BAYER-2012-134205

PATIENT
  Age: 57 Year
  Sex: Female

DRUGS (5)
  1. CIPROFLOXACIN [Suspect]
     Indication: LEGIONNAIRE^S DISEASE
     Route: 048
  2. ACYCLOVIR [ACICLOVIR] [Concomitant]
  3. VORICONAZOLE [Concomitant]
  4. ATOVAQUONE [Concomitant]
  5. PREDNISONE [Concomitant]

REACTIONS (1)
  - Drug ineffective [Recovering/Resolving]
